FAERS Safety Report 23024309 (Version 2)
Quarter: 2023Q4

REPORT INFORMATION
  Report Type: Spontaneous
  Country: US (occurrence: US)
  Receive Date: 20231004
  Receipt Date: 20231018
  Transmission Date: 20240109
  Serious: Yes (Hospitalization, Other)
  Sender: FDA-Public Use
  Company Number: US-AUROBINDO-AUR-APL-2023-061295

PATIENT
  Age: 76 Year
  Sex: Male

DRUGS (1)
  1. APIXABAN [Suspect]
     Active Substance: APIXABAN
     Indication: Atrial fibrillation
     Dosage: 5 MILLIGRAM, TWO TIMES A DAY (S LAST DOSE OF APIXABAN 6 HOUR PRIOR TO PRESENTATION)
     Route: 065

REACTIONS (3)
  - Shock haemorrhagic [Recovered/Resolved]
  - Post procedural haemorrhage [Recovered/Resolved]
  - Haematochezia [Recovered/Resolved]
